FAERS Safety Report 10128485 (Version 2)
Quarter: 2014Q3

REPORT INFORMATION
  Report Type: Spontaneous
  Country: US (occurrence: None)
  Receive Date: 20140424
  Receipt Date: 20140731
  Transmission Date: 20150326
  Serious: Yes (Disabling)
  Sender: FDA-Public Use
  Company Number: CIO14026917

PATIENT
  Age: 80 Year
  Sex: Female
  Weight: 72.6 kg

DRUGS (11)
  1. CREST CAVITY PROTECTION [Suspect]
     Active Substance: SODIUM FLUORIDE
     Dosage: 1 APPLIC, 2/DAY, ABOUT 3/4 OF BRISTLE AREA AND RECENTLY DECREASED AMOUNT ON TOOTHBRUSH, INTRAORAL
  2. ATENOLOL. [Concomitant]
     Active Substance: ATENOLOL
  3. FAMOTIDINE. [Concomitant]
     Active Substance: FAMOTIDINE
  4. MVI (VITAMINS NOS) [Concomitant]
  5. VITAMIN D  (ERGOCALCIFEROL) [Concomitant]
     Active Substance: ERGOCALCIFEROL
  6. ATIVAN [Concomitant]
     Active Substance: LORAZEPAM
  7. LISTERINE ORIGINAL [Suspect]
     Active Substance: EUCALYPTOL\MENTHOL\METHYL SALICYLATE\THYMOL
     Indication: DENTAL PROSTHESIS USER
     Dosage: INTRAORAL
  8. ASPIRIN (ACETYLSALICYLIC ACID) [Concomitant]
     Active Substance: ASPIRIN
  9. PLAVIX [Concomitant]
     Active Substance: CLOPIDOGREL BISULFATE
  10. OCUVITE LUTEIN (ASCORBIC ACID, CUPRIC OXIDE, TOCOPHERYL ACETATE, XANTOFYL, ZINC OXIDE) [Concomitant]
  11. DIOVAN [Concomitant]
     Active Substance: VALSARTAN

REACTIONS (2)
  - Ageusia [None]
  - Tongue disorder [None]
